FAERS Safety Report 4964263-6 (Version None)
Quarter: 2006Q1

REPORT INFORMATION
  Report Type: 
  Country: None (occurrence: None)
  Receive Date: 20060331
  Receipt Date: 20060314
  Transmission Date: 20060701
  Serious: Yes (Other)
  Sender: FDA-Public Use
  Company Number: US200603003960

PATIENT
  Sex: Female

DRUGS (3)
  1. FORTEO (TERIPARATIDE)  PEN, DISPOSALBE [Suspect]
     Indication: OSTEOPOROSIS
     Dates: start: 20050201
  2. FORTEO [Concomitant]
  3. ZANTAC [Concomitant]

REACTIONS (2)
  - EYE DISORDER [None]
  - EYE HAEMORRHAGE [None]
